FAERS Safety Report 24256538 (Version 1)
Quarter: 2024Q3

REPORT INFORMATION
  Report Type: Spontaneous
  Country: ES (occurrence: ES)
  Receive Date: 20240828
  Receipt Date: 20240828
  Transmission Date: 20241016
  Serious: Yes (Hospitalization)
  Sender: Haleon PLC
  Company Number: ES-HALEON-2193210

PATIENT
  Age: 73 Year
  Sex: Female

DRUGS (3)
  1. IBUPROFEN [Suspect]
     Active Substance: IBUPROFEN
     Indication: Device physical property issue
     Dosage: 1/8 HOURS
     Route: 048
     Dates: start: 20240606, end: 20240613
  2. AMOXICILLIN\CLAVULANATE POTASSIUM [Suspect]
     Active Substance: AMOXICILLIN\CLAVULANATE POTASSIUM
     Indication: Device physical property issue
     Dosage: STRENGTH 875 MG/125 MG; 1/8 H
     Route: 048
     Dates: start: 20240606, end: 20240613
  3. ENALAPRIL [Concomitant]
     Active Substance: ENALAPRIL
     Indication: Hypertension
     Dosage: 5 MG / 24H
     Route: 048
     Dates: start: 20190219

REACTIONS (3)
  - Hepatitis cholestatic [Recovering/Resolving]
  - Choluria [Recovered/Resolved]
  - Jaundice [Recovering/Resolving]

NARRATIVE: CASE EVENT DATE: 20240609
